FAERS Safety Report 26151346 (Version 1)
Quarter: 2025Q4

REPORT INFORMATION
  Report Type: Report from Study
  Country: PR (occurrence: PR)
  Receive Date: 20251212
  Receipt Date: 20251212
  Transmission Date: 20260118
  Serious: No
  Sender: MALLINCKRODT
  Company Number: PR-MALLINCKRODT-MNK202507780

PATIENT
  Sex: Female

DRUGS (1)
  1. CORTICOTROPIN [Suspect]
     Active Substance: CORTICOTROPIN
     Indication: Iridocyclitis
     Dosage: UNKNOWN

REACTIONS (5)
  - Apathy [Unknown]
  - Weight increased [Not Recovered/Not Resolved]
  - Swelling [Unknown]
  - Mood swings [Unknown]
  - Insomnia [Unknown]
